FAERS Safety Report 26185575 (Version 1)
Quarter: 2025Q4

REPORT INFORMATION
  Report Type: Spontaneous
  Country: US (occurrence: US)
  Receive Date: 20251222
  Receipt Date: 20251222
  Transmission Date: 20260118
  Serious: Yes (Life-Threatening, Hospitalization)
  Sender: MYLAN
  Company Number: US-MYLANLABS-2025M1106763

PATIENT
  Age: 7 Decade
  Sex: Male

DRUGS (4)
  1. ESTRADIOL [Suspect]
     Active Substance: ESTRADIOL
     Indication: Transgender hormonal therapy
     Dosage: UNK
  2. ESTRADIOL [Suspect]
     Active Substance: ESTRADIOL
     Dosage: UNK
     Route: 065
  3. ESTRADIOL [Suspect]
     Active Substance: ESTRADIOL
     Dosage: UNK
     Route: 065
  4. ESTRADIOL [Suspect]
     Active Substance: ESTRADIOL
     Dosage: UNK

REACTIONS (4)
  - Cerebral infarction [Unknown]
  - Carotid arterial embolus [Unknown]
  - Cardio-respiratory arrest [Unknown]
  - Product prescribing issue [Unknown]
